FAERS Safety Report 9261658 (Version 1)
Quarter: 2013Q2

REPORT INFORMATION
  Report Type: Spontaneous
  Country: FR (occurrence: FR)
  Receive Date: 20130429
  Receipt Date: 20130429
  Transmission Date: 20140414
  Serious: Yes (Hospitalization)
  Sender: FDA-Public Use
  Company Number: FR-PFIZER INC-2013126255

PATIENT
  Age: 20 Year
  Sex: Female

DRUGS (2)
  1. MINIDRIL [Suspect]
     Indication: ORAL CONTRACEPTION
     Dosage: UNK
     Route: 048
  2. JASMINE [Suspect]
     Indication: ORAL CONTRACEPTION
     Dosage: UNK
     Route: 048

REACTIONS (2)
  - Arterial thrombosis [Recovering/Resolving]
  - Renal infarct [Recovering/Resolving]
